FAERS Safety Report 18666781 (Version 1)
Quarter: 2020Q4

REPORT INFORMATION
  Report Type: Spontaneous
  Country: GB (occurrence: GB)
  Receive Date: 20201227
  Receipt Date: 20201227
  Transmission Date: 20210114
  Serious: Yes (Hospitalization)
  Sender: FDA-Public Use
  Company Number: GB-JNJFOC-20201243473

PATIENT
  Age: 66 Year
  Sex: Female

DRUGS (8)
  1. TREVICTA [Suspect]
     Active Substance: PALIPERIDONE PALMITATE
  2. METFORMIN [Concomitant]
     Active Substance: METFORMIN HYDROCHLORIDE
  3. SIMVASTATIN. [Concomitant]
     Active Substance: SIMVASTATIN
  4. LANSOPRAZOLE. [Concomitant]
     Active Substance: LANSOPRAZOLE
  5. TRAVATAN [Concomitant]
     Active Substance: TRAVOPROST
  6. TREVICTA [Suspect]
     Active Substance: PALIPERIDONE PALMITATE
     Indication: SCHIZOPHRENIA
     Route: 030
     Dates: start: 20170302, end: 20181020
  7. TREVICTA [Suspect]
     Active Substance: PALIPERIDONE PALMITATE
  8. CASSIA [Concomitant]

REACTIONS (4)
  - Dry mouth [Unknown]
  - Schizophrenia [Unknown]
  - Swelling [Unknown]
  - Somnolence [Unknown]

NARRATIVE: CASE EVENT DATE: 20170516
